FAERS Safety Report 11188679 (Version 1)
Quarter: 2015Q2

REPORT INFORMATION
  Report Type: Spontaneous
  Country: US (occurrence: None)
  Receive Date: 20150611
  Receipt Date: 20150611
  Transmission Date: 20150821
  Serious: Yes (Hospitalization)
  Sender: FDA-Public Use
  Company Number: 2015NUEUSA00527

PATIENT
  Sex: Female

DRUGS (2)
  1. NUEDEXTA [Suspect]
     Active Substance: DEXTROMETHORPHAN HYDROBROMIDE\QUINIDINE SULFATE
     Indication: AFFECT LABILITY
     Route: 048
     Dates: start: 201505, end: 201505
  2. BETA BLOCKING AGENTS AND OTHER ANTIHYPERTENSIVES ONGOING [Concomitant]

REACTIONS (4)
  - Muscle twitching [None]
  - Atrioventricular block complete [None]
  - Hyperkalaemia [None]
  - Blood creatinine increased [None]

NARRATIVE: CASE EVENT DATE: 2015
